FAERS Safety Report 9145963 (Version 2)
Quarter: 2013Q1

REPORT INFORMATION
  Report Type: Spontaneous
  Country: US (occurrence: None)
  Receive Date: 20130220
  Receipt Date: 20130307
  Transmission Date: 20140127
  Serious: Yes (Death)
  Sender: FDA-Public Use
  Company Number: 2013CT000010

PATIENT
  Age: 74 Year
  Sex: Male

DRUGS (1)
  1. KORLYM [Suspect]
     Indication: CUSHING^S SYNDROME
     Route: 048

REACTIONS (2)
  - Pituitary-dependent Cushing^s syndrome [None]
  - Disease progression [None]
